FAERS Safety Report 19985859 (Version 1)
Quarter: 2021Q4

REPORT INFORMATION
  Report Type: Spontaneous
  Country: CN (occurrence: CN)
  Receive Date: 20211022
  Receipt Date: 20211022
  Transmission Date: 20220304
  Serious: Yes (Other)
  Sender: FDA-Public Use
  Company Number: CN-BAYER-2021A216789

PATIENT
  Sex: Female

DRUGS (1)
  1. YASMIN [Suspect]
     Active Substance: DROSPIRENONE\ETHINYL ESTRADIOL
     Indication: Ovarian cyst
     Dosage: UNK
     Route: 048
     Dates: end: 20210922

REACTIONS (9)
  - Gastrointestinal disorder [None]
  - Abnormal withdrawal bleeding [Not Recovered/Not Resolved]
  - Nausea [None]
  - Asthenia [None]
  - Weight decreased [None]
  - Decreased appetite [None]
  - Dysgeusia [Recovered/Resolved]
  - Off label use [None]
  - Inappropriate schedule of product administration [None]

NARRATIVE: CASE EVENT DATE: 20210901
